FAERS Safety Report 17489061 (Version 2)
Quarter: 2020Q2

REPORT INFORMATION
  Report Type: Spontaneous
  Country: ES (occurrence: ES)
  Receive Date: 20200303
  Receipt Date: 20200625
  Transmission Date: 20200713
  Serious: Yes (Hospitalization, Disabling, Other)
  Sender: FDA-Public Use
  Company Number: ES-B.I. PHARMACEUTICALS,INC./RIDGEFIELD-2020-12-012424

PATIENT
  Age: 55 Year
  Sex: Male
  Weight: 92 kg

DRUGS (3)
  1. JARDIANCE [Suspect]
     Active Substance: EMPAGLIFLOZIN
     Indication: TYPE 2 DIABETES MELLITUS
     Route: 048
     Dates: start: 20190304
  2. ABASAGLAR [Concomitant]
     Active Substance: INSULIN GLARGINE
     Indication: TYPE 2 DIABETES MELLITUS
     Route: 065
     Dates: start: 20190108
  3. VELMETIA [Concomitant]
     Active Substance: METFORMIN\SITAGLIPTIN
     Indication: TYPE 2 DIABETES MELLITUS
     Dosage: STRENGTH: 50/1000 MG
     Route: 065
     Dates: start: 20171013

REACTIONS (2)
  - Diabetic foot [Not Recovered/Not Resolved]
  - Toe amputation [Not Recovered/Not Resolved]

NARRATIVE: CASE EVENT DATE: 20200117
